FAERS Safety Report 12247341 (Version 8)
Quarter: 2019Q3

REPORT INFORMATION
  Report Type: Spontaneous
  Country: CA (occurrence: CA)
  Receive Date: 20160407
  Receipt Date: 20190725
  Transmission Date: 20191004
  Serious: Yes (Other)
  Sender: FDA-Public Use
  Company Number: CA-PFIZER INC-2016195992

PATIENT
  Age: 11 Year
  Sex: Female

DRUGS (8)
  1. METHYLPREDNISOLONE SODIUM SUCCINATE. [Suspect]
     Active Substance: METHYLPREDNISOLONE SODIUM SUCCINATE
     Indication: ENGRAFTMENT SYNDROME
     Dosage: 1 MG/KG, 1X/DAY
     Route: 042
  2. MYCOPHENOLIC ACID. [Suspect]
     Active Substance: MYCOPHENOLIC ACID
     Indication: IMMUNOSUPPRESSION
     Dosage: UNK
     Route: 065
  3. METHOTREXATE SODIUM. [Suspect]
     Active Substance: METHOTREXATE SODIUM
     Indication: GRAFT VERSUS HOST DISEASE
     Dosage: UNK
     Route: 065
  4. BUDESONIDE. [Suspect]
     Active Substance: BUDESONIDE
     Indication: IMMUNOSUPPRESSION
     Dosage: UNK
     Route: 048
  5. METHYLPREDNISOLONE SODIUM SUCCINATE. [Suspect]
     Active Substance: METHYLPREDNISOLONE SODIUM SUCCINATE
     Dosage: UNK
     Route: 013
  6. BECLOMETHASONE [Suspect]
     Active Substance: BECLOMETHASONE
     Indication: IMMUNOSUPPRESSION
     Dosage: UNK
     Route: 048
  7. ENBREL [Suspect]
     Active Substance: ETANERCEPT
     Indication: IMMUNOSUPPRESSION
     Dosage: UNK
     Route: 058
  8. CYCLOSPORINE. [Suspect]
     Active Substance: CYCLOSPORINE
     Indication: GRAFT VERSUS HOST DISEASE
     Dosage: UNK
     Route: 065

REACTIONS (4)
  - Incorrect route of product administration [Unknown]
  - Product use in unapproved indication [Unknown]
  - Graft versus host disease in gastrointestinal tract [Unknown]
  - Graft versus host disease in skin [Unknown]
